FAERS Safety Report 9132676 (Version 5)
Quarter: 2014Q2

REPORT INFORMATION
  Report Type: Report from Study
  Country: US (occurrence: US)
  Receive Date: 20130301
  Receipt Date: 20140411
  Transmission Date: 20141212
  Serious: Yes (Hospitalization)
  Sender: FDA-Public Use
  Company Number: US-PFIZER INC-2012280066

PATIENT
  Age: 60 Year
  Sex: Female
  Weight: 37.8 kg

DRUGS (7)
  1. CRIZOTINIB [Suspect]
     Indication: NON-SMALL CELL LUNG CANCER
     Dosage: 200 MG, 2X/DAY
     Route: 048
     Dates: start: 20120914, end: 20121004
  2. CRIZOTINIB [Suspect]
     Dosage: 200 MG, 2X/DAY
     Dates: start: 20121012, end: 20121106
  3. DACOMITINIB [Suspect]
     Indication: NON-SMALL CELL LUNG CANCER
     Dosage: 30 MG, 1X/DAY
     Route: 048
     Dates: start: 20120928, end: 20121004
  4. DACOMITINIB [Suspect]
     Dosage: 15 MG, 1X/DAY
     Route: 048
     Dates: start: 20121012, end: 20121106
  5. CLINDAMYCIN [Concomitant]
     Indication: RASH
     Dosage: 1 %, 2X/DAY
     Route: 061
     Dates: start: 20120928
  6. COMPAZINE [Concomitant]
     Indication: PROPHYLAXIS OF NAUSEA AND VOMITING
     Dosage: 10 MG, AS NEEDED
     Route: 048
     Dates: start: 20121004
  7. ATIVAN [Concomitant]
     Indication: PROPHYLAXIS OF NAUSEA AND VOMITING
     Dosage: 1 MG, QD
     Route: 048
     Dates: start: 20110901

REACTIONS (3)
  - Hypotension [Recovered/Resolved]
  - Diarrhoea [Recovered/Resolved]
  - Dehydration [Recovered/Resolved]
